FAERS Safety Report 6545493-9 (Version None)
Quarter: 2010Q1

REPORT INFORMATION
  Report Type: 
  Country: None (occurrence: None)
  Receive Date: 20100119
  Receipt Date: 20100108
  Transmission Date: 20100710
  Serious: Yes (Hospitalization, Other)
  Sender: FDA-Public Use
  Company Number: 2010SP002387

PATIENT
  Age: 82 Year
  Sex: Male
  Weight: 85 kg

DRUGS (24)
  1. TEMOZOLOMIDE [Suspect]
     Indication: METASTATIC MALIGNANT MELANOMA
     Dosage: 150 MG/M2; ; PO
     Route: 048
     Dates: start: 20091116, end: 20091122
  2. ABT-888 (INVESTIGATIONAL DRUG) [Suspect]
     Indication: METASTATIC MALIGNANT MELANOMA
     Dosage: ; BID; PO
     Route: 048
     Dates: start: 20091116, end: 20091122
  3. PROCHLORPERAZINE [Concomitant]
  4. EDISYLATE [Concomitant]
  5. ONDANSETRON [Concomitant]
  6. COUMADIN [Concomitant]
  7. PIOGLITAZONE [Concomitant]
  8. SIMVASTATIN [Concomitant]
  9. SERETIDE [Concomitant]
  10. FINASTERIDE [Concomitant]
  11. ALBUTEROL [Concomitant]
  12. PARACETAMOL [Concomitant]
  13. QUETIAPINE FUMARATE [Concomitant]
  14. LOMOTIL [Concomitant]
  15. MESALAZINE [Concomitant]
  16. DULOXETINE HYDROCHLORIDE [Concomitant]
  17. POTASSIUM [Concomitant]
  18. TUMS [Concomitant]
  19. FLORASTAR [Concomitant]
  20. VICODIN [Concomitant]
  21. ERGOCALCIFEROL [Concomitant]
  22. ZOLPIDEM TARTRATE [Concomitant]
  23. FILGRASTIM [Concomitant]
  24. DIPHENHYDRAMINE HYDROCHLORIDE [Concomitant]

REACTIONS (5)
  - DEHYDRATION [None]
  - FALL [None]
  - FATIGUE [None]
  - INAPPROPRIATE ANTIDIURETIC HORMONE SECRETION [None]
  - PANCYTOPENIA [None]
